FAERS Safety Report 7342791-6 (Version None)
Quarter: 2011Q1

REPORT INFORMATION
  Report Type: 
  Country: None (occurrence: None)
  Receive Date: 20110310
  Receipt Date: 20100108
  Transmission Date: 20110831
  Serious: Yes (Death, Other)
  Sender: FDA-Public Use
  Company Number: US-BAYER-201010337NA

PATIENT
  Sex: Male
  Weight: 77.098 kg

DRUGS (8)
  1. LOPRESSOR [Suspect]
     Dosage: 25 MG, BID
     Route: 048
     Dates: start: 20000101
  2. HEPARIN [Suspect]
     Dosage: UNK
     Route: 042
     Dates: start: 20040927
  3. ZOCOR [Concomitant]
     Indication: PRODUCT USED FOR UNKNOWN INDICATION
     Dosage: 20 MG, QD
     Route: 048
     Dates: start: 20020101
  4. TRASYLOL [Suspect]
     Indication: PRODUCT USED FOR UNKNOWN INDICATION
     Route: 042
  5. NOVOLIN [INSULIN] [Concomitant]
  6. BAYER ASPIRIN SUGAR FREE LOW DOSE ENTERIC [Concomitant]
  7. VITAMIN E [Concomitant]
  8. AMARYL [Concomitant]
     Dosage: 4 MG, QD
     Route: 048
     Dates: start: 20020101

REACTIONS (13)
  - UNEVALUABLE EVENT [None]
  - DEATH [None]
  - ANXIETY [None]
  - INJURY [None]
  - MYOCARDIAL INFARCTION [None]
  - RENAL IMPAIRMENT [None]
  - FEAR [None]
  - RENAL FAILURE [None]
  - EMOTIONAL DISTRESS [None]
  - RENAL INJURY [None]
  - STRESS [None]
  - PAIN [None]
  - ANHEDONIA [None]
